FAERS Safety Report 15714899 (Version 1)
Quarter: 2018Q4

REPORT INFORMATION
  Report Type: Spontaneous
  Country: CR (occurrence: CR)
  Receive Date: 20181212
  Receipt Date: 20181212
  Transmission Date: 20190205
  Serious: Yes (Hospitalization, Other)
  Sender: FDA-Public Use
  Company Number: CR-BAYER-2018-224788

PATIENT
  Age: 62 Year
  Sex: Male

DRUGS (1)
  1. NEXAVAR [Suspect]
     Active Substance: SORAFENIB
     Indication: HEPATOCELLULAR CARCINOMA
     Dosage: UNK
     Dates: start: 20181201

REACTIONS (7)
  - Micturition disorder [Recovered/Resolved]
  - Urine output decreased [Unknown]
  - Epistaxis [Unknown]
  - Ascites [Unknown]
  - Psychiatric symptom [Unknown]
  - Oedema peripheral [Unknown]
  - Peritonitis [Unknown]

NARRATIVE: CASE EVENT DATE: 201812
